FAERS Safety Report 13445671 (Version 2)
Quarter: 2017Q3

REPORT INFORMATION
  Report Type: Spontaneous
  Country: US (occurrence: US)
  Receive Date: 20170416
  Receipt Date: 20170915
  Transmission Date: 20171127
  Serious: No
  Sender: FDA-Public Use
  Company Number: US-LUNDBECK-DKLU2028540

PATIENT
  Age: 59 Year
  Sex: Female

DRUGS (3)
  1. NORTHERA [Suspect]
     Active Substance: DROXIDOPA
     Route: 048
     Dates: start: 20170326, end: 20170326
  2. NORTHERA [Suspect]
     Active Substance: DROXIDOPA
     Indication: ORTHOSTATIC HYPOTENSION
     Route: 048
     Dates: start: 20170323
  3. NORTHERA [Suspect]
     Active Substance: DROXIDOPA
     Dosage: SCHEDULE B AND TITRATING
     Route: 065
     Dates: start: 20170324

REACTIONS (10)
  - Movement disorder [Unknown]
  - Peripheral coldness [Recovering/Resolving]
  - Sedation [Recovering/Resolving]
  - Diarrhoea [Recovering/Resolving]
  - Gastrointestinal pain [Unknown]
  - Cystitis interstitial [Recovering/Resolving]
  - Sensory disturbance [Recovering/Resolving]
  - Dizziness [Recovering/Resolving]
  - Muscle spasms [Unknown]
  - Heart rate increased [Unknown]

NARRATIVE: CASE EVENT DATE: 20170323
